FAERS Safety Report 5035679-7 (Version None)
Quarter: 2006Q2

REPORT INFORMATION
  Report Type: 
  Country: None (occurrence: None)
  Receive Date: 20060627
  Receipt Date: 20040721
  Transmission Date: 20061013
  Serious: Yes (Death)
  Sender: FDA-Public Use
  Company Number: GB-SANOFI-SYNTHELABO-F01200402054

PATIENT
  Sex: Male

DRUGS (4)
  1. DOMPERIDONE [Concomitant]
     Dosage: UNK
     Route: 065
     Dates: start: 20040622
  2. LOPERAMIDE [Concomitant]
  3. CAPECITABINE [Suspect]
     Dosage: 1800 MG TWICE A DAY PER ORAL FROM D1 TO D15
     Route: 048
     Dates: start: 20040622, end: 20040706
  4. OXALIPLATIN [Suspect]
     Indication: COLON CANCER
     Route: 042
     Dates: start: 20040622, end: 20040622

REACTIONS (10)
  - BRAIN OEDEMA [None]
  - CARDIAC ARREST [None]
  - CARDIOMYOPATHY [None]
  - DIARRHOEA [None]
  - DRUG TOXICITY [None]
  - GENERAL PHYSICAL HEALTH DETERIORATION [None]
  - NAUSEA [None]
  - PERITONEAL ADHESIONS [None]
  - PULMONARY OEDEMA [None]
  - RENAL DISORDER [None]
